FAERS Safety Report 20611365 (Version 1)
Quarter: 2022Q1

REPORT INFORMATION
  Report Type: Spontaneous
  Country: US (occurrence: None)
  Receive Date: 20220318
  Receipt Date: 20220318
  Transmission Date: 20220423
  Serious: Yes (Hospitalization)
  Sender: FDA-Public Use
  Company Number: None

PATIENT
  Sex: Female

DRUGS (7)
  1. NUCALA [Suspect]
     Active Substance: MEPOLIZUMAB
     Indication: Asthma
     Dosage: INJECT 100MG UNDER THE SKIN (SUBCUTANEOUS INJECTION) ONCE EVERY 28 DAYS?
     Route: 058
     Dates: start: 20180731
  2. ATORVASTATIN [Concomitant]
     Active Substance: ATORVASTATIN
  3. METOPROL SUC TAB ER [Concomitant]
  4. MONTELUKAST SODIUM [Concomitant]
     Active Substance: MONTELUKAST SODIUM
  5. NUCALA [Concomitant]
     Active Substance: MEPOLIZUMAB
  6. RESTASIS EMU [Concomitant]
  7. SYMBICORT AER [Concomitant]

REACTIONS (1)
  - Supraventricular tachycardia [None]
